FAERS Safety Report 9435934 (Version 1)
Quarter: 2013Q3

REPORT INFORMATION
  Report Type: Spontaneous
  Country: US (occurrence: US)
  Receive Date: 20130801
  Receipt Date: 20130801
  Transmission Date: 20140515
  Serious: No
  Sender: FDA-Public Use
  Company Number: US-BAYER-2013-092170

PATIENT
  Age: 34 Year
  Sex: Female
  Weight: 104 kg

DRUGS (3)
  1. ALEVE TABLET [Suspect]
     Dosage: 1 DF, BID
     Route: 048
     Dates: start: 201305, end: 20130715
  2. ALEVE TABLET [Suspect]
     Dosage: 1 DF, BID
     Route: 048
     Dates: start: 201305, end: 20130715
  3. ALEVE CAPLET [Suspect]
     Dosage: 1 DF, BID
     Route: 048
     Dates: start: 201305, end: 20130715

REACTIONS (5)
  - Nausea [Recovered/Resolved]
  - Vomiting [Recovered/Resolved]
  - Abdominal pain [Recovered/Resolved]
  - Dizziness [Not Recovered/Not Resolved]
  - Incorrect drug administration duration [None]
